FAERS Safety Report 6435371-8 (Version None)
Quarter: 2009Q4

REPORT INFORMATION
  Report Type: 
  Country: None (occurrence: None)
  Receive Date: 20091106
  Receipt Date: 20091021
  Transmission Date: 20100525
  Serious: Yes (Other)
  Sender: FDA-Public Use
  Company Number: AVE_01072_2009

PATIENT
  Age: 30 Year
  Sex: Female

DRUGS (3)
  1. CLONIDINE [Suspect]
     Indication: HYPERTENSION
     Dosage: 0,3 MG, QD, VIA 1 WEEKLY PATCH, TRANSDERMAL
     Route: 062
     Dates: start: 20091002
  2. MINOXIDIL [Concomitant]
  3. OTHER UNSPECIFIED DRUGS [Concomitant]

REACTIONS (5)
  - BLOOD PRESSURE INCREASED [None]
  - HEART RATE INCREASED [None]
  - NAUSEA [None]
  - PRODUCT ADHESION ISSUE [None]
  - PRODUCT SUBSTITUTION ISSUE [None]
